FAERS Safety Report 12457418 (Version 2)
Quarter: 2016Q4

REPORT INFORMATION
  Report Type: Spontaneous
  Country: IT (occurrence: IT)
  Receive Date: 20160610
  Receipt Date: 20161010
  Transmission Date: 20170207
  Serious: Yes (Hospitalization)
  Sender: FDA-Public Use
  Company Number: IT-MYLANLABS-2016M1024126

PATIENT

DRUGS (2)
  1. IBUPROFEN. [Suspect]
     Active Substance: IBUPROFEN
     Indication: ANALGESIC THERAPY
     Dosage: 400 MG, QD
     Dates: start: 20160315, end: 20160330
  2. INDOBUFEN [Concomitant]
     Active Substance: INDOBUFEN
     Indication: PRODUCT USED FOR UNKNOWN INDICATION
     Dosage: 1 DF

REACTIONS (5)
  - Gastritis [Recovering/Resolving]
  - Duodenitis [Unknown]
  - Nausea [Unknown]
  - Vomiting [Unknown]
  - Haemoglobin decreased [Unknown]

NARRATIVE: CASE EVENT DATE: 20160331
